FAERS Safety Report 7914638-8 (Version None)
Quarter: 2011Q4

REPORT INFORMATION
  Report Type: 
  Country: None (occurrence: None)
  Receive Date: 20111115
  Receipt Date: 20111109
  Transmission Date: 20120403
  Serious: Yes (Life-Threatening)
  Sender: FDA-Public Use
  Company Number: PHHY2011JP90820

PATIENT
  Sex: Male
  Weight: 59 kg

DRUGS (3)
  1. EXELON [Suspect]
     Indication: DEMENTIA ALZHEIMER'S TYPE
     Dosage: 4.5 MG, DAILY
     Route: 062
     Dates: start: 20110825, end: 20110922
  2. EXELON [Suspect]
     Dosage: 9 MG, DAILY
     Route: 062
     Dates: start: 20110922, end: 20111006
  3. EXELON [Suspect]
     Dosage: 4.5 MG, DAILY

REACTIONS (9)
  - INTERSTITIAL LUNG DISEASE [None]
  - CELL MARKER INCREASED [None]
  - FEELING ABNORMAL [None]
  - COUGH [None]
  - WHITE BLOOD CELL COUNT INCREASED [None]
  - NASOPHARYNGITIS [None]
  - NAUSEA [None]
  - DYSPNOEA [None]
  - RESPIRATORY DISORDER [None]
